FAERS Safety Report 9013765 (Version 1)
Quarter: 2012Q4

REPORT INFORMATION
  Report Type: Spontaneous
  Country: GB (occurrence: None)
  Receive Date: 20121231
  Receipt Date: 20121231
  Transmission Date: 20130627
  Serious: Yes (Hospitalization, Disabling)
  Sender: FDA-Public Use
  Company Number: GER/UKI/12/0027185

PATIENT
  Age: 92 Year
  Sex: Female

DRUGS (7)
  1. ALENDRONIC ACID (ALENDRONIC ACID) [Suspect]
     Indication: BONE DISORDER
     Route: 048
     Dates: end: 20121130
  2. ALENDRONIC ACID (ALENDRONIC ACID) [Suspect]
     Indication: PROPHYLAXIS
     Route: 048
     Dates: end: 20121130
  3. ANASTROZOLE (ANASTROZOLE) [Concomitant]
  4. CALCIUM AND VITAMIN D3 (LEKOVIT CA) [Concomitant]
  5. DALTEPARIN (DALTEPARIN) [Concomitant]
  6. DOCUSATE (DOCUSATE) [Concomitant]
  7. SENNA (SENNA ALEXANDRINA) [Concomitant]

REACTIONS (2)
  - Hallucinations, mixed [None]
  - Delirium [None]
